FAERS Safety Report 10363218 (Version 1)
Quarter: 2014Q1

REPORT INFORMATION
  Report Type: Spontaneous
  Country: US (occurrence: None)
  Receive Date: 20140306
  Receipt Date: 20140306
  Transmission Date: 20141002
  Serious: Yes (Hospitalization)
  Sender: FDA-Public Use
  Company Number: 163-21880-13074472

PATIENT
  Age: 66 Year
  Sex: Female

DRUGS (16)
  1. REVLIMID [Suspect]
     Indication: PLASMA CELL MYELOMA
     Route: 048
     Dates: start: 201210
  2. LASIX(FUROSEMIDE)(UNKNOWN) [Concomitant]
  3. KCL(POTASSIUM CHLORIDE) (UNKNOWN) [Concomitant]
  4. PRILOSEC(OMEPRAZOLE)(UNKNOWN)? [Concomitant]
  5. LISINOPRIL(LISINOPRIL)(UNKNOWN)? [Concomitant]
  6. LEVOTHYROXIN(LEVOTHYROXINE SODIUM)(UNKNOWN) [Concomitant]
  7. CLONAZEPAM(CLONAZEPAM)(UNKNOWN) [Concomitant]
  8. SIMVASTATIN(SIMVASTATIN)(UNKNOWN) [Concomitant]
  9. LORATADINE(LORATADINE)(UNKNOWN) [Concomitant]
  10. SINGULAIR(MONTELUKAST)(UNKNOWN) [Concomitant]
  11. IRON (IRON) (UNKNOWN) [Concomitant]
  12. CALCIUM(CALCIUM)(UNKNOWN) [Concomitant]
  13. COUMADIN(WARFARIN SODIUM)(UNKNOWN) [Concomitant]
  14. HYDROMORPHONE(HYDROMORPHONE)(UNKNOWN [Concomitant]
  15. BABY ASPIRIN(ACETYLSALICYLIC ACID)(UNKNOWN) [Concomitant]
  16. PEROOCET(OXYCOCET)(UNKNOWN) [Concomitant]

REACTIONS (2)
  - Chest pain [None]
  - Local swelling [None]
